FAERS Safety Report 4306315-X (Version None)
Quarter: 2004Q1

REPORT INFORMATION
  Report Type: 
  Country: None (occurrence: None)
  Receive Date: 20040225
  Receipt Date: 20020514
  Transmission Date: 20041129
  Serious: No
  Sender: FDA-Public Use
  Company Number: US-BRISTOL-MYERS SQUIBB COMPANY-12282059

PATIENT
  Age: 22 Year
  Sex: Female
  Weight: 99 kg

DRUGS (2)
  1. EXCEDRIN (MIGRAINE) [Suspect]
     Indication: NASOPHARYNGITIS
     Route: 048
     Dates: start: 20030510
  2. COMTREX DEEP CCC LIQUIGEL [Suspect]
     Dates: start: 20030510

REACTIONS (4)
  - DIZZINESS [None]
  - NAUSEA [None]
  - TINNITUS [None]
  - VOMITING [None]
